FAERS Safety Report 13540547 (Version 1)
Quarter: 2017Q2

REPORT INFORMATION
  Report Type: Spontaneous
  Country: JP (occurrence: JP)
  Receive Date: 20170512
  Receipt Date: 20170512
  Transmission Date: 20170830
  Serious: Yes (Other)
  Sender: FDA-Public Use
  Company Number: JP-MYLANLABS-2017M1028538

PATIENT

DRUGS (2)
  1. TICLOPIDINE [Concomitant]
     Active Substance: TICLOPIDINE
     Indication: PRODUCT USED FOR UNKNOWN INDICATION
     Dosage: FOR OVER A 4-YEAR PERIOD
     Route: 065
  2. LANSOPRAZOLE. [Suspect]
     Active Substance: LANSOPRAZOLE
     Indication: PRODUCT USED FOR UNKNOWN INDICATION
     Dosage: 15MG/DAY; LONG TERM USE, FOR OVER A 4-YEAR PERIOD
     Route: 065

REACTIONS (2)
  - Adenocarcinoma gastric [Recovered/Resolved]
  - Hypergastrinaemia [Recovered/Resolved]
